FAERS Safety Report 25545033 (Version 5)
Quarter: 2025Q3

REPORT INFORMATION
  Report Type: Spontaneous
  Country: EU (occurrence: EU)
  Receive Date: 20250711
  Receipt Date: 20250902
  Transmission Date: 20251021
  Serious: Yes (Death, Other)
  Sender: AMGEN
  Company Number: EU-ROCHE-10000280447

PATIENT
  Age: 16 Year
  Sex: Female
  Weight: 46 kg

DRUGS (45)
  1. FILGRASTIM [Suspect]
     Active Substance: FILGRASTIM
     Indication: B-cell lymphoma
     Route: 058
     Dates: start: 20250505
  2. FILGRASTIM [Suspect]
     Active Substance: FILGRASTIM
     Route: 040
     Dates: start: 20250507
  3. LENOGRASTIM [Suspect]
     Active Substance: LENOGRASTIM
     Indication: B-cell lymphoma
     Route: 058
     Dates: start: 20250805
  4. LENOGRASTIM [Suspect]
     Active Substance: LENOGRASTIM
     Indication: B-cell lymphoma
     Route: 040
     Dates: start: 20250507
  5. GLOFITAMAB [Suspect]
     Active Substance: GLOFITAMAB
     Indication: B-cell lymphoma
     Route: 040
     Dates: start: 20250507
  6. OBINUTUZUMAB [Suspect]
     Active Substance: OBINUTUZUMAB
     Indication: B-cell lymphoma
     Route: 040
     Dates: start: 20250420
  7. OBINUTUZUMAB [Suspect]
     Active Substance: OBINUTUZUMAB
     Route: 040
     Dates: start: 20250420
  8. IFOSFAMIDE [Suspect]
     Active Substance: IFOSFAMIDE
     Indication: B-cell lymphoma
     Route: 040
     Dates: start: 20250502
  9. CARBOPLATIN [Suspect]
     Active Substance: CARBOPLATIN
     Indication: B-cell lymphoma
     Route: 040
     Dates: start: 20250502
  10. ETOPOSIDE [Suspect]
     Active Substance: ETOPOSIDE
     Indication: B-cell lymphoma
     Route: 040
     Dates: start: 20250502
  11. MESNA [Suspect]
     Active Substance: MESNA
     Indication: B-cell lymphoma
     Route: 040
     Dates: start: 20250502
  12. METHOTREXATE [Suspect]
     Active Substance: METHOTREXATE
     Indication: B-cell lymphoma
     Route: 029
     Dates: start: 20250428
  13. CYTARABINE [Suspect]
     Active Substance: CYTARABINE
     Indication: B-cell lymphoma
     Route: 029
     Dates: start: 20250428
  14. HYDROCORTISONE [Suspect]
     Active Substance: HYDROCORTISONE
     Indication: B-cell lymphoma
     Route: 029
     Dates: start: 20250428
  15. VASOPRESSIN [Concomitant]
     Active Substance: VASOPRESSIN
     Indication: Hypotension
     Route: 065
  16. AMPHOTERICIN B [Concomitant]
     Active Substance: AMPHOTERICIN B
     Indication: Prophylaxis
     Route: 048
     Dates: start: 20250422, end: 20250513
  17. Reducto [Concomitant]
     Indication: Hypokalaemia
     Dosage: 2 DOSAGE FORM, QD
     Route: 048
     Dates: start: 20250506, end: 20250506
  18. CLEMASTINE [Concomitant]
     Active Substance: CLEMASTINE
     Indication: Prophylaxis
     Route: 040
     Dates: start: 20250430, end: 20250514
  19. DIMENHYDRINATE [Concomitant]
     Active Substance: DIMENHYDRINATE
     Indication: Nausea
     Route: 040
     Dates: start: 20250503, end: 20250505
  20. Kalinor [Concomitant]
     Indication: Hypokalaemia
     Dosage: 3 DOSAGE FORM, QD
     Route: 048
     Dates: start: 20250502, end: 20250502
  21. LEVOMEPROMAZINE [Concomitant]
     Active Substance: LEVOMEPROMAZINE
     Indication: Nausea
     Dosage: 20 MILLIGRAM, QD
     Route: 048
     Dates: start: 20250506, end: 20250506
  22. POLYETHYLENE GLYCOLS [Concomitant]
     Active Substance: POLYETHYLENE GLYCOLS
     Indication: Prophylaxis
     Route: 048
     Dates: start: 20250506, end: 20250506
  23. METAMIZOLE [Concomitant]
     Active Substance: METAMIZOLE
     Indication: Pyrexia
     Dosage: 700 MILLIGRAM, QD
     Route: 040
     Dates: start: 20250426, end: 20250426
  24. METAMIZOLE [Concomitant]
     Active Substance: METAMIZOLE
     Route: 040
     Dates: start: 20250428, end: 20250428
  25. METAMIZOLE [Concomitant]
     Active Substance: METAMIZOLE
     Dosage: 700 MILLIGRAM, Q6H/ QID
     Route: 040
     Dates: start: 20250429, end: 20250429
  26. METAMIZOLE [Concomitant]
     Active Substance: METAMIZOLE
     Dosage: 700 MILLIGRAM, QD
     Route: 040
     Dates: start: 20250430, end: 20250430
  27. METAMIZOLE [Concomitant]
     Active Substance: METAMIZOLE
     Route: 040
     Dates: start: 20250503, end: 20250503
  28. METAMIZOLE [Concomitant]
     Active Substance: METAMIZOLE
     Route: 040
     Dates: start: 20250503, end: 20250512
  29. METAMIZOLE [Concomitant]
     Active Substance: METAMIZOLE
     Route: 040
     Dates: start: 20250508, end: 20250512
  30. METAMIZOLE [Concomitant]
     Active Substance: METAMIZOLE
     Route: 040
     Dates: start: 20250429, end: 20250429
  31. METHYLPREDNISOLONE [Concomitant]
     Active Substance: METHYLPREDNISOLONE
     Indication: Prophylaxis
     Route: 040
     Dates: start: 20250430, end: 20250507
  32. MORPHINE SULFATE [Concomitant]
     Active Substance: MORPHINE SULFATE
     Indication: Pain
     Route: 040
     Dates: start: 20250507, end: 20250511
  33. ONDANSETRON [Concomitant]
     Active Substance: ONDANSETRON
     Indication: Nausea
     Dosage: 7 MILLIGRAM, QD
     Route: 040
     Dates: start: 20250428, end: 20250428
  34. ONDANSETRON [Concomitant]
     Active Substance: ONDANSETRON
     Dosage: 8 MILLIGRAM, QD
     Route: 040
     Dates: start: 20250430, end: 20250430
  35. ONDANSETRON [Concomitant]
     Active Substance: ONDANSETRON
     Route: 040
     Dates: start: 20250501, end: 20250504
  36. ONDANSETRON [Concomitant]
     Active Substance: ONDANSETRON
     Dosage: 7 MILLIGRAM, QD
     Route: 040
     Dates: start: 20250504, end: 20250504
  37. ONDANSETRON [Concomitant]
     Active Substance: ONDANSETRON
     Route: 040
     Dates: start: 20250505, end: 20250506
  38. PANTOPRAZOLE [Concomitant]
     Active Substance: PANTOPRAZOLE
     Indication: Prophylaxis
     Dosage: 20 MILLIGRAM, QD
     Route: 048
     Dates: start: 20250430, end: 20250506
  39. ACETAMINOPHEN [Concomitant]
     Active Substance: ACETAMINOPHEN
     Indication: Pyrexia
     Route: 040
     Dates: start: 20250430, end: 20250508
  40. ACETAMINOPHEN [Concomitant]
     Active Substance: ACETAMINOPHEN
     Dosage: 500 MILLIGRAM, QD
     Route: 040
     Dates: start: 20250501, end: 20250501
  41. PIPERACILLIN SODIUM\TAZOBACTAM SODIUM [Concomitant]
     Active Substance: PIPERACILLIN SODIUM\TAZOBACTAM SODIUM
     Indication: Prophylaxis
     Dosage: 4 GRAM, BID
     Route: 040
     Dates: start: 20250508, end: 20250508
  42. VALACYCLOVIR HYDROCHLORIDE [Concomitant]
     Active Substance: VALACYCLOVIR HYDROCHLORIDE
     Indication: Prophylaxis
     Dosage: 500 MILLIGRAM, BID
     Route: 048
     Dates: start: 20250326, end: 20250430
  43. VANCOMYCIN [Concomitant]
     Active Substance: VANCOMYCIN
     Indication: Prophylaxis
     Dosage: 650 MILLIGRAM, BID
     Route: 040
     Dates: start: 20250508, end: 20250508
  44. VANCOMYCIN [Concomitant]
     Active Substance: VANCOMYCIN
     Route: 040
     Dates: start: 20250509, end: 20250511
  45. METAMIZOLE [Concomitant]
     Active Substance: METAMIZOLE
     Dosage: 500 MILLIGRAM, QD
     Route: 048
     Dates: start: 20250430, end: 20250430

REACTIONS (2)
  - Death [Fatal]
  - Cytokine release syndrome [Recovered/Resolved]

NARRATIVE: CASE EVENT DATE: 20250507
